FAERS Safety Report 18460299 (Version 2)
Quarter: 2020Q4

REPORT INFORMATION
  Report Type: Report from Study
  Country: ES (occurrence: ES)
  Receive Date: 20201103
  Receipt Date: 20201106
  Transmission Date: 20210114
  Serious: Yes (Other)
  Sender: FDA-Public Use
  Company Number: ES-BAXTER-2020BAX022433

PATIENT
  Age: 61 Year
  Sex: Male

DRUGS (10)
  1. VINCRISTINE [Suspect]
     Active Substance: VINCRISTINE
     Indication: T-CELL TYPE ACUTE LEUKAEMIA
     Dosage: FORMULATION: UNKNOWN
     Route: 037
     Dates: start: 20200703, end: 20200722
  2. DOXIL [Suspect]
     Active Substance: DOXORUBICIN HYDROCHLORIDE
     Indication: T-CELL TYPE ACUTE LEUKAEMIA
     Route: 037
     Dates: start: 20200703, end: 20200722
  3. MOGAMULIZUMAB [Suspect]
     Active Substance: MOGAMULIZUMAB
     Indication: T-CELL TYPE ACUTE LEUKAEMIA
     Route: 065
     Dates: start: 20200803, end: 20200831
  4. CARBOPLATIN. [Suspect]
     Active Substance: CARBOPLATIN
     Indication: T-CELL TYPE ACUTE LEUKAEMIA
     Route: 037
     Dates: start: 20200703, end: 20200722
  5. ETOPOSIDE. [Suspect]
     Active Substance: ETOPOSIDE
     Indication: T-CELL TYPE ACUTE LEUKAEMIA
     Dosage: FORMULATION: UNKNOWN
     Route: 037
     Dates: start: 20200703, end: 20200722
  6. ZIDOVUDIN [Suspect]
     Active Substance: ZIDOVUDINE
     Indication: T-CELL TYPE ACUTE LEUKAEMIA
     Dosage: 250 MG/6 H
     Route: 037
     Dates: start: 20200703, end: 20200722
  7. RANIMUSTINE [Suspect]
     Active Substance: RANIMUSTINE
     Indication: T-CELL TYPE ACUTE LEUKAEMIA
     Route: 037
     Dates: start: 20200703, end: 20200722
  8. VINDESINE [Suspect]
     Active Substance: VINDESINE
     Indication: T-CELL TYPE ACUTE LEUKAEMIA
     Route: 037
     Dates: start: 20200703, end: 20200722
  9. GENOXAL [Suspect]
     Active Substance: CYCLOPHOSPHAMIDE
     Indication: T-CELL TYPE ACUTE LEUKAEMIA
     Dosage: FORMULATION: UNKNOWN
     Route: 037
     Dates: start: 20200703, end: 20200722
  10. PREDNISOLONE. [Suspect]
     Active Substance: PREDNISOLONE
     Indication: T-CELL TYPE ACUTE LEUKAEMIA
     Route: 037
     Dates: start: 20200703, end: 20200722

REACTIONS (3)
  - Haematotoxicity [Unknown]
  - Bone marrow failure [Unknown]
  - Toxicity to various agents [Unknown]

NARRATIVE: CASE EVENT DATE: 2020
